FAERS Safety Report 8803216 (Version 3)
Quarter: 2012Q4

REPORT INFORMATION
  Report Type: 
  Country: US (occurrence: US)
  Receive Date: 20120924
  Receipt Date: 20121105
  Transmission Date: 20130627
  Serious: No
  Sender: FDA-Public Use
  Company Number: US-BAYER-2012-096381

PATIENT
  Age: 32 Year
  Sex: Female

DRUGS (2)
  1. MIRENA [Suspect]
     Dosage: 20 mcg/24hr, UNK
     Route: 015
     Dates: start: 20120914, end: 20120914
  2. MIRENA [Suspect]
     Dosage: 20 mcg/24hr, UNK
     Dates: start: 20120914

REACTIONS (3)
  - Device deployment issue [Recovered/Resolved]
  - Device component issue [None]
  - Device expulsion [None]
